FAERS Safety Report 4925775-4 (Version None)
Quarter: 2006Q1

REPORT INFORMATION
  Report Type: 
  Country: None (occurrence: None)
  Receive Date: 20060228
  Receipt Date: 20050304
  Transmission Date: 20060701
  Serious: No
  Sender: FDA-Public Use
  Company Number: US-GLAXOSMITHKLINE-A0550473A

PATIENT
  Age: 47 Year
  Sex: Female
  Weight: 50.5 kg

DRUGS (4)
  1. LAMICTAL [Suspect]
     Dosage: 25MG SEE DOSAGE TEXT
     Route: 048
     Dates: start: 20050203, end: 20050216
  2. PREMARIN [Concomitant]
  3. ACTONEL [Concomitant]
  4. TRAZODONE [Concomitant]

REACTIONS (4)
  - COUGH [None]
  - MOUTH ULCERATION [None]
  - RASH PRURITIC [None]
  - SWELLING FACE [None]
